FAERS Safety Report 8447294-3 (Version None)
Quarter: 2012Q2

REPORT INFORMATION
  Report Type: 
  Country: None (occurrence: None)
  Receive Date: 20120619
  Receipt Date: 20120612
  Transmission Date: 20120825
  Serious: Yes (Other)
  Sender: FDA-Public Use
  Company Number: PHHY2012JP051343

PATIENT
  Age: 15 Year
  Sex: Female

DRUGS (1)
  1. NEORAL [Suspect]
     Indication: APLASTIC ANAEMIA
     Route: 048

REACTIONS (3)
  - ORTHOSTATIC HYPOTENSION [None]
  - GAIT DISTURBANCE [None]
  - ORTHOSTATIC INTOLERANCE [None]
